FAERS Safety Report 4324736-6 (Version None)
Quarter: 2004Q1

REPORT INFORMATION
  Report Type: 
  Country: None (occurrence: None)
  Receive Date: 20040326
  Receipt Date: 20031016
  Transmission Date: 20041129
  Serious: Yes (Hospitalization, Other)
  Sender: FDA-Public Use
  Company Number: WAES 0310USA01957

PATIENT
  Age: 57 Year
  Sex: Female
  Weight: 50 kg

DRUGS (13)
  1. [THERAPY UNSPECIFIED] [Concomitant]
     Indication: PAIN
     Dates: start: 19900101
  2. ACETAMINOPHEN [Concomitant]
  3. PERCOCET [Concomitant]
     Indication: FIBROMYALGIA
  4. SOMA [Concomitant]
     Indication: MUSCLE RELAXANT THERAPY
  5. ZYRTEC [Concomitant]
     Indication: HYPERSENSITIVITY
  6. PREMARIN [Concomitant]
     Indication: HORMONE REPLACEMENT THERAPY
     Dates: start: 19860101, end: 20010901
  7. MOTRIN [Concomitant]
     Indication: FIBROMYALGIA
     Dates: start: 19900101
  8. OCUFLOX [Concomitant]
  9. OXYCODONE [Concomitant]
  10. PREDNISONE [Concomitant]
     Route: 047
  11. VIOXX [Suspect]
     Indication: FIBROMYALGIA
     Route: 048
     Dates: start: 20010901, end: 20020301
  12. VIOXX [Suspect]
     Indication: NECK PAIN
     Route: 048
     Dates: start: 20010901, end: 20020301
  13. ULTRAM [Concomitant]
     Dates: start: 19980101

REACTIONS (17)
  - BLOOD CHOLESTEROL INCREASED [None]
  - BRONCHITIS [None]
  - CATARACT [None]
  - CEREBROVASCULAR ACCIDENT [None]
  - DEHYDRATION [None]
  - DIARRHOEA [None]
  - DIVERTICULITIS [None]
  - FIBROMYALGIA [None]
  - GASTROENTERITIS VIRAL [None]
  - GASTROINTESTINAL DISORDER [None]
  - HYPERTENSION [None]
  - NAUSEA [None]
  - NORMOCHROMIC NORMOCYTIC ANAEMIA [None]
  - PAIN [None]
  - PLATELET COUNT INCREASED [None]
  - RENAL FAILURE ACUTE [None]
  - WHITE BLOOD CELL COUNT INCREASED [None]
